FAERS Safety Report 5701040-2 (Version None)
Quarter: 2008Q2

REPORT INFORMATION
  Report Type: 
  Country: None (occurrence: None)
  Receive Date: 20080410
  Receipt Date: 20080328
  Transmission Date: 20081010
  Serious: Yes (Disabling)
  Sender: FDA-Public Use
  Company Number: US-WYE-H03188308

PATIENT
  Sex: Male
  Weight: 80 kg

DRUGS (3)
  1. TORISEL [Suspect]
     Indication: RENAL CELL CARCINOMA
     Route: 042
     Dates: start: 20070814, end: 20080103
  2. TORISEL [Suspect]
     Indication: METASTASIS
  3. KEPPRA [Concomitant]
     Indication: CONVULSION
     Route: 048

REACTIONS (16)
  - ARTHRALGIA [None]
  - ERYTHEMA [None]
  - FACE OEDEMA [None]
  - FATIGUE [None]
  - GAIT DISTURBANCE [None]
  - HYPOAESTHESIA [None]
  - JOINT RANGE OF MOTION DECREASED [None]
  - LOCAL SWELLING [None]
  - OEDEMA [None]
  - OEDEMA PERIPHERAL [None]
  - PITTING OEDEMA [None]
  - PLEURAL EFFUSION [None]
  - SCROTAL SWELLING [None]
  - SKIN DISCOLOURATION [None]
  - SKIN DISORDER [None]
  - SKIN ULCER [None]
